FAERS Safety Report 12194503 (Version 1)
Quarter: 2016Q1

REPORT INFORMATION
  Report Type: Spontaneous
  Country: US (occurrence: None)
  Receive Date: 20160318
  Receipt Date: 20160318
  Transmission Date: 20160526
  Serious: Yes (Disabling)
  Sender: FDA-Public Use
  Company Number: None

PATIENT
  Age: 48 Year
  Sex: Female
  Weight: 49.9 kg

DRUGS (3)
  1. PREDNISONE 20 [Suspect]
     Active Substance: PREDNISONE
     Indication: PRODUCT USED FOR UNKNOWN INDICATION
     Route: 030
  2. TRIAMCINOLONE [Suspect]
     Active Substance: TRIAMCINOLONE
  3. DELTASONE [Concomitant]
     Active Substance: PREDNISONE

REACTIONS (2)
  - Injection site reaction [None]
  - Injection site pain [None]
